FAERS Safety Report 12440150 (Version 1)
Quarter: 2016Q2

REPORT INFORMATION
  Report Type: Spontaneous
  Country: US (occurrence: US)
  Receive Date: 20160606
  Receipt Date: 20160606
  Transmission Date: 20160815
  Serious: No
  Sender: FDA-Public Use
  Company Number: US-AMGEN-USASP2015106338

PATIENT
  Age: 87 Year
  Sex: Male
  Weight: 75 kg

DRUGS (2)
  1. PROCRIT [Suspect]
     Active Substance: ERYTHROPOIETIN
     Dosage: 60,000 UNIT, ONCE
     Route: 042
     Dates: start: 20151007
  2. PROCRIT [Suspect]
     Active Substance: ERYTHROPOIETIN
     Indication: MYELODYSPLASTIC SYNDROME
     Dosage: 60,000 UNIT, ONCE
     Route: 042
     Dates: start: 20151007

REACTIONS (1)
  - Drug dose omission [Not Recovered/Not Resolved]

NARRATIVE: CASE EVENT DATE: 20151007
